FAERS Safety Report 6521397-2 (Version None)
Quarter: 2009Q4

REPORT INFORMATION
  Report Type: 
  Country: None (occurrence: None)
  Receive Date: 20091222
  Receipt Date: 20091215
  Transmission Date: 20100525
  Serious: Yes (Hospitalization)
  Sender: FDA-Public Use
  Company Number: SPV1-2009-02382

PATIENT
  Age: 71 Year
  Sex: Male

DRUGS (11)
  1. FOSRENOL [Suspect]
     Indication: HYPERPHOSPHATAEMIA
     Dosage: MG, ORAL; 750 MG, 3X/DAY: TID, ORAL
     Route: 048
     Dates: start: 20090115, end: 20090605
  2. FOSRENOL [Suspect]
     Indication: HYPERPHOSPHATAEMIA
     Dosage: MG, ORAL; 750 MG, 3X/DAY: TID, ORAL
     Route: 048
     Dates: start: 20070101
  3. LEVOTHYROXINE SODIUM [Suspect]
     Indication: THYROIDECTOMY
     Dosage: 50 TO 150 MIKROGRAM PER DAY, ORAL
     Route: 048
     Dates: start: 20030101
  4. OSVAREN [Concomitant]
  5. B-COMBIN (CALCIUM PANTOTHENATE, NICOTINAMIDE, PYRIDOXINE HYDROCHLORIDE [Concomitant]
  6. MICARDIS [Concomitant]
  7. METOPROLOL SUCCINATE [Concomitant]
  8. VENOFER [Concomitant]
  9. FOLINSYRE (FOLIC ACID) [Concomitant]
  10. INNOHEP [Concomitant]
  11. CALCIUM (CALCIUM) [Concomitant]

REACTIONS (4)
  - BLOOD THYROID STIMULATING HORMONE INCREASED [None]
  - DRUG INTERACTION [None]
  - THYROXINE DECREASED [None]
  - TRI-IODOTHYRONINE DECREASED [None]
